FAERS Safety Report 9158277 (Version 1)
Quarter: 2013Q1

REPORT INFORMATION
  Report Type: Spontaneous
  Country: FR (occurrence: FR)
  Receive Date: 20130312
  Receipt Date: 20130312
  Transmission Date: 20140127
  Serious: Yes (Hospitalization)
  Sender: FDA-Public Use
  Company Number: FR-TEVA-389330ISR

PATIENT
  Age: 57 Year
  Sex: Female

DRUGS (8)
  1. ESTREVA [Suspect]
     Indication: HORMONE REPLACEMENT THERAPY
     Route: 003
     Dates: start: 2002, end: 20090120
  2. PRETERAX [Suspect]
     Indication: HYPERTENSION
     Dosage: 1 DOSAGE FORMS DAILY;
     Route: 048
     Dates: start: 20081219, end: 20090106
  3. PHYSIOTENS [Suspect]
     Indication: HYPERTENSION
     Route: 048
     Dates: start: 20090106, end: 20090110
  4. MEDIATOR [Suspect]
     Indication: DIABETES MELLITUS
     Route: 048
     Dates: start: 2004, end: 20090110
  5. LIPANTHYL [Suspect]
     Indication: DYSLIPIDAEMIA
     Dosage: 1 DOSAGE FORMS DAILY;
     Route: 048
     Dates: start: 2004, end: 20090110
  6. MICARDIS [Suspect]
     Indication: HYPERTENSION
     Route: 048
     Dates: start: 20090110, end: 20090113
  7. STAGID [Suspect]
     Indication: DIABETES MELLITUS
     Route: 048
     Dates: start: 20090110, end: 20090113
  8. UTROGESTAN [Suspect]
     Indication: HORMONE REPLACEMENT THERAPY
     Route: 048
     Dates: start: 2002, end: 20090121

REACTIONS (6)
  - Rash scarlatiniform [Recovering/Resolving]
  - Anxiety [None]
  - Hypertensive crisis [None]
  - Asthenia [None]
  - Arthralgia [None]
  - Chills [None]
